FAERS Safety Report 12073651 (Version 1)
Quarter: 2016Q1

REPORT INFORMATION
  Report Type: Report from Study
  Country: ES (occurrence: ES)
  Receive Date: 20160212
  Receipt Date: 20160212
  Transmission Date: 20160526
  Serious: Yes (Other)
  Sender: FDA-Public Use
  Company Number: ES-PFIZER INC-2016080526

PATIENT
  Age: 90 Year
  Sex: Female

DRUGS (1)
  1. BESITRAN [Suspect]
     Active Substance: SERTRALINE HYDROCHLORIDE
     Indication: DEPRESSION
     Dosage: 50 MG, 1X/DAY (1-0-0)
     Route: 048
     Dates: start: 20151203, end: 20151222

REACTIONS (2)
  - Confusional state [Recovering/Resolving]
  - Fall [Recovering/Resolving]

NARRATIVE: CASE EVENT DATE: 2015
